FAERS Safety Report 10344018 (Version 1)
Quarter: 2014Q3

REPORT INFORMATION
  Report Type: Spontaneous
  Country: US (occurrence: None)
  Receive Date: 20140724
  Receipt Date: 20140724
  Transmission Date: 20150326
  Serious: Yes (Other)
  Sender: FDA-Public Use
  Company Number: None

PATIENT
  Age: 7 Year
  Sex: Male
  Weight: 22.68 kg

DRUGS (2)
  1. GUANFACINE. [Suspect]
     Active Substance: GUANFACINE
     Indication: ATTENTION DEFICIT/HYPERACTIVITY DISORDER
     Dosage: 1 MG 1/2 IN AM 1/2 A NIGHT, IT WAS TAKEN 1 EHOLE PILL ONCE A DAY
     Dates: start: 20140404, end: 20140711
  2. TENEX [Concomitant]
     Active Substance: GUANFACINE HYDROCHLORIDE

REACTIONS (3)
  - Nipple disorder [None]
  - Mass [None]
  - Gynaecomastia [None]

NARRATIVE: CASE EVENT DATE: 20140629
